FAERS Safety Report 16062805 (Version 1)
Quarter: 2019Q1

REPORT INFORMATION
  Report Type: Spontaneous
  Country: IT (occurrence: IT)
  Receive Date: 20190312
  Receipt Date: 20190312
  Transmission Date: 20190418
  Serious: Yes (Other)
  Sender: FDA-Public Use
  Company Number: IT-HERITAGE PHARMACEUTICALS-2019HTG00069

PATIENT
  Age: 72 Year
  Sex: Female

DRUGS (2)
  1. INDOMETHACIN/CAFFEINE/PROCHLORPERAZINE [Suspect]
     Active Substance: CAFFEINE\INDOMETHACIN\PROCHLORPERAZINE
     Indication: MIGRAINE
     Dosage: 4 TO 5 TIMES WEEKLY
     Route: 054
  2. LEVOTHYROXINE. [Concomitant]
     Active Substance: LEVOTHYROXINE
     Route: 065

REACTIONS (6)
  - Anal ulcer [Recovered/Resolved]
  - Cytomegalovirus test positive [None]
  - Impaired healing [None]
  - Epstein-Barr virus antibody positive [None]
  - Antinuclear antibody positive [None]
  - Herpes simplex test positive [None]
